FAERS Safety Report 15466825 (Version 1)
Quarter: 2018Q4

REPORT INFORMATION
  Report Type: Report from Study
  Country: None (occurrence: BR)
  Receive Date: 20181005
  Receipt Date: 20181005
  Transmission Date: 20190204
  Serious: Yes (Hospitalization)
  Sender: FDA-Public Use
  Company Number: BR-ABBVIE-18K-020-2506976-00

PATIENT
  Sex: Female
  Weight: 59 kg

DRUGS (4)
  1. ENBREL [Suspect]
     Active Substance: ETANERCEPT
     Indication: PRODUCT USED FOR UNKNOWN INDICATION
     Route: 065
  2. METHOTREXATE. [Concomitant]
     Active Substance: METHOTREXATE
     Indication: PRODUCT USED FOR UNKNOWN INDICATION
  3. HUMIRA [Suspect]
     Active Substance: ADALIMUMAB
     Indication: PSORIATIC ARTHROPATHY
     Route: 058
     Dates: start: 20110802, end: 2013
  4. HUMIRA [Suspect]
     Active Substance: ADALIMUMAB
     Route: 058
     Dates: start: 201604, end: 201801

REACTIONS (6)
  - Drug hypersensitivity [Recovered/Resolved]
  - Dermatitis allergic [Recovered/Resolved]
  - Osteoarthritis [Recovered/Resolved]
  - Pneumonia [Recovered/Resolved]
  - Lung disorder [Not Recovered/Not Resolved]
  - Pruritus allergic [Recovered/Resolved]

NARRATIVE: CASE EVENT DATE: 2013
